FAERS Safety Report 9228544 (Version 1)
Quarter: 2013Q1

REPORT INFORMATION
  Report Type: Spontaneous
  Country: US (occurrence: None)
  Receive Date: 20121016
  Receipt Date: 20121016
  Transmission Date: 20140127
  Serious: Yes (Hospitalization, Other)
  Sender: FDA-Public Use
  Company Number: 2011029698

PATIENT
  Sex: Female

DRUGS (1)
  1. PRIVIGEN [Suspect]
     Indication: DERMATOMYOSITIS
     Dosage: 40 G 1X/MONTH, OVER 7-8 HOURS INTRAVENOUS (NOT OTHERWISE SPECIFIED)
     Dates: start: 200903

REACTIONS (4)
  - Meningitis aseptic [None]
  - Headache [None]
  - Neck pain [None]
  - Vomiting [None]
